FAERS Safety Report 10442398 (Version 4)
Quarter: 2015Q1

REPORT INFORMATION
  Report Type: Spontaneous
  Country: US (occurrence: US)
  Receive Date: 20140909
  Receipt Date: 20150310
  Transmission Date: 20150720
  Serious: Yes (Other)
  Sender: FDA-Public Use
  Company Number: US-BAYER-2014-130270

PATIENT
  Age: 26 Year
  Sex: Female
  Weight: 57.6 kg

DRUGS (1)
  1. MIRENA [Suspect]
     Active Substance: LEVONORGESTREL
     Indication: CONTRACEPTION
     Dosage: 20 MCG/24HR, CONT
     Route: 015
     Dates: start: 20100924, end: 20130816

REACTIONS (12)
  - Injury [None]
  - Drug ineffective [None]
  - Drug diversion [None]
  - Uterine perforation [None]
  - Ectopic pregnancy with contraceptive device [None]
  - Pregnancy with contraceptive device [None]
  - Genital haemorrhage [None]
  - Device defective [None]
  - Dyspareunia [None]
  - Coital bleeding [None]
  - Back pain [Not Recovered/Not Resolved]
  - Pain [None]

NARRATIVE: CASE EVENT DATE: 2012
